FAERS Safety Report 21504500 (Version 1)
Quarter: 2022Q4

REPORT INFORMATION
  Report Type: Spontaneous
  Country: US (occurrence: None)
  Receive Date: 20221025
  Receipt Date: 20221025
  Transmission Date: 20230113
  Serious: Yes (Hospitalization, Other)
  Sender: FDA-Public Use
  Company Number: 2022A354789

PATIENT

DRUGS (3)
  1. ANDEXANET ALFA [Suspect]
     Active Substance: ANDEXANET ALFA
     Route: 040
  2. RIVAROXABAN [Concomitant]
     Active Substance: RIVAROXABAN
     Indication: Atrial fibrillation
     Route: 065
  3. HEPARIN [Concomitant]
     Active Substance: HEPARIN SODIUM
     Dosage: 354 U/KG
     Route: 065

REACTIONS (1)
  - Heparin resistance [Unknown]
